FAERS Safety Report 11848934 (Version 2)
Quarter: 2016Q1

REPORT INFORMATION
  Report Type: Spontaneous
  Country: US (occurrence: US)
  Receive Date: 20151218
  Receipt Date: 20160229
  Transmission Date: 20160526
  Serious: No
  Sender: FDA-Public Use
  Company Number: US-ASTRAZENECA-2015SF25026

PATIENT
  Age: 29622 Day
  Sex: Female
  Weight: 57.2 kg

DRUGS (2)
  1. BUDESONIDE. [Suspect]
     Active Substance: BUDESONIDE
     Indication: INFLAMMATION
     Route: 055
  2. SYMBICORT [Suspect]
     Active Substance: BUDESONIDE\FORMOTEROL FUMARATE DIHYDRATE
     Indication: ASTHMA
     Dosage: 160/4.5 UG, 2 PUFFS, TWO TIMES A DAY
     Route: 055

REACTIONS (7)
  - Nervousness [Unknown]
  - Intentional product misuse [Unknown]
  - Drug dose omission [Unknown]
  - Feeling abnormal [Unknown]
  - Asthma [Unknown]
  - Visual acuity reduced [Unknown]
  - Product quality issue [Unknown]

NARRATIVE: CASE EVENT DATE: 20151208
